FAERS Safety Report 10145738 (Version 1)
Quarter: 2014Q2

REPORT INFORMATION
  Report Type: Report from Study
  Country: IN (occurrence: IN)
  Receive Date: 20140501
  Receipt Date: 20140501
  Transmission Date: 20141212
  Serious: Yes (Other)
  Sender: FDA-Public Use
  Company Number: PHHY2014IN051497

PATIENT
  Age: 70 Year
  Sex: Male

DRUGS (3)
  1. ACLASTA [Suspect]
     Indication: OSTEOPOROSIS
     Dosage: 5 MG /100ML, UNK
     Route: 042
     Dates: start: 201212
  2. ACLASTA [Suspect]
     Dosage: 5 MG /100ML, UNK
     Route: 042
     Dates: start: 20131221
  3. CITROMACALVIT [Concomitant]
     Indication: BLOOD CALCIUM ABNORMAL
     Dosage: UNK
     Route: 048

REACTIONS (1)
  - Joint dislocation [Not Recovered/Not Resolved]
